FAERS Safety Report 4563940-9 (Version None)
Quarter: 2005Q1

REPORT INFORMATION
  Report Type: 
  Country: None (occurrence: None)
  Receive Date: 20050128
  Receipt Date: 20050120
  Transmission Date: 20050727
  Serious: Yes (Hospitalization)
  Sender: FDA-Public Use
  Company Number: US-JNJFOC-20050105399

PATIENT
  Sex: Female
  Weight: 102.06 kg

DRUGS (5)
  1. DURAGESIC [Suspect]
     Indication: CYSTITIS INTERSTITIAL
     Route: 062
  2. ELMIRON [Suspect]
     Indication: CYSTITIS INTERSTITIAL
     Route: 049
  3. NORVASC [Concomitant]
     Indication: HYPERTENSION
     Route: 049
  4. MAXZIDE [Concomitant]
     Route: 049
  5. MAXZIDE [Concomitant]
     Indication: HYPERTENSION
     Dosage: 75/56 ONE DAILY
     Route: 049

REACTIONS (4)
  - CEREBROVASCULAR ACCIDENT [None]
  - DIZZINESS [None]
  - OFF LABEL USE [None]
  - VOMITING [None]
